FAERS Safety Report 18002195 (Version 2)
Quarter: 2021Q1

REPORT INFORMATION
  Report Type: Spontaneous
  Country: US (occurrence: US)
  Receive Date: 20200709
  Receipt Date: 20210316
  Transmission Date: 20210419
  Serious: No
  Sender: FDA-Public Use
  Company Number: US-JNJFOC-20200708869

PATIENT
  Age: 27 Year
  Sex: Male

DRUGS (1)
  1. RISPERDAL [Suspect]
     Active Substance: RISPERIDONE
     Indication: AGGRESSION
     Dosage: AT VARYING DOSES OF 1 MG TWICE A DAY AND 1 MG TWICE A DAY WITH 0.5 MG AT 3 PM
     Route: 048
     Dates: start: 2003

REACTIONS (2)
  - Breast enlargement [Unknown]
  - Emotional disorder [Unknown]

NARRATIVE: CASE EVENT DATE: 20180526
